FAERS Safety Report 4333055-3 (Version None)
Quarter: 2004Q2

REPORT INFORMATION
  Report Type: 
  Country: None (occurrence: None)
  Receive Date: 20040406
  Receipt Date: 20040330
  Transmission Date: 20050107
  Serious: Yes (Other)
  Sender: FDA-Public Use
  Company Number: CA-ROCHE-363499

PATIENT
  Sex: Female

DRUGS (2)
  1. TORADOL [Suspect]
     Indication: PAIN
     Route: 048
     Dates: start: 20031212, end: 20031215
  2. BIAXIN [Suspect]
     Indication: INFECTION
     Route: 048
     Dates: start: 20040122, end: 20040129

REACTIONS (1)
  - DEAFNESS [None]
